FAERS Safety Report 13179705 (Version 1)
Quarter: 2017Q1

REPORT INFORMATION
  Report Type: Spontaneous
  Country: US (occurrence: US)
  Receive Date: 20170202
  Receipt Date: 20170202
  Transmission Date: 20170428
  Serious: No
  Sender: FDA-Public Use
  Company Number: US-BAYER-2017-015551

PATIENT
  Sex: Female

DRUGS (2)
  1. CLARITIN [Suspect]
     Active Substance: LORATADINE
     Indication: EAR DISCOMFORT
     Dosage: 10 MG, QD
     Route: 065
  2. CLARITIN-D 24 HOUR [Suspect]
     Active Substance: LORATADINE\PSEUDOEPHEDRINE SULFATE
     Indication: EAR DISCOMFORT
     Dosage: UNK
     Route: 065

REACTIONS (2)
  - Off label use [Unknown]
  - Ear discomfort [Unknown]
